FAERS Safety Report 8252711-8 (Version None)
Quarter: 2012Q2

REPORT INFORMATION
  Report Type: 
  Country: None (occurrence: None)
  Receive Date: 20120402
  Receipt Date: 20110825
  Transmission Date: 20120825
  Serious: No
  Sender: FDA-Public Use
  Company Number: US-ABBOTT-11P-163-0849358-00

PATIENT
  Sex: Male
  Weight: 72.64 kg

DRUGS (2)
  1. ANDROGEL [Suspect]
     Indication: BLOOD TESTOSTERONE DECREASED
     Dosage: TWO PUMPS TO EACH ARM 4 TIMES WEEKLY
     Dates: start: 20090101, end: 20110801
  2. MULTIPLE UNKNOWN MEDICATIONS [Concomitant]
     Indication: PRODUCT USED FOR UNKNOWN INDICATION

REACTIONS (7)
  - ASTHENIA [None]
  - DEPRESSION [None]
  - DECREASED INTEREST [None]
  - DRUG INEFFECTIVE [None]
  - MOOD ALTERED [None]
  - BLOOD TESTOSTERONE DECREASED [None]
  - INCORRECT STORAGE OF DRUG [None]
